FAERS Safety Report 6211150-1 (Version None)
Quarter: 2009Q2

REPORT INFORMATION
  Report Type: 
  Country: None (occurrence: None)
  Receive Date: 20090602
  Receipt Date: 20090526
  Transmission Date: 20091009
  Serious: Yes (Death, Hospitalization)
  Sender: FDA-Public Use
  Company Number: ID-ROCHE-634831

PATIENT
  Age: 37 Year
  Sex: Female

DRUGS (1)
  1. OSELTAMIVIR [Suspect]
     Indication: AVIAN INFLUENZA
     Route: 065
     Dates: start: 20070106, end: 20070111

REACTIONS (1)
  - ACUTE RESPIRATORY DISTRESS SYNDROME [None]
